FAERS Safety Report 7263447-4 (Version None)
Quarter: 2011Q1

REPORT INFORMATION
  Report Type: 
  Country: None (occurrence: None)
  Receive Date: 20110130
  Receipt Date: 20101106
  Transmission Date: 20110831
  Serious: No
  Sender: FDA-Public Use
  Company Number: US-ABBOTT-10P-163-0683905-00

PATIENT
  Age: 34 Year
  Sex: Male

DRUGS (4)
  1. HUMIRA [Suspect]
     Dates: start: 20100901, end: 20100901
  2. LEXAPRO [Concomitant]
     Indication: ANXIETY
     Dosage: DAILY
  3. LEXAPRO [Concomitant]
     Indication: DEPRESSION
  4. HUMIRA [Suspect]
     Indication: PSORIATIC ARTHROPATHY

REACTIONS (4)
  - FEELING ABNORMAL [None]
  - INFECTIOUS MONONUCLEOSIS [None]
  - PSORIATIC ARTHROPATHY [None]
  - BRONCHITIS [None]
